FAERS Safety Report 9162162 (Version 1)
Quarter: 2013Q1

REPORT INFORMATION
  Report Type: Spontaneous
  Country: DE (occurrence: None)
  Receive Date: 20130220
  Receipt Date: 20130220
  Transmission Date: 20140127
  Serious: Yes (Other)
  Sender: FDA-Public Use
  Company Number: GER/GER/13/0028018

PATIENT
  Age: 66 Year
  Sex: Female

DRUGS (1)
  1. ALENDRONIC ACID (ALENDRONIC ACID) [Suspect]
     Indication: OSTEOPOROSIS PROPHYLAXIS
     Route: 048
     Dates: start: 200909, end: 2010

REACTIONS (6)
  - Colitis [None]
  - Disease recurrence [None]
  - Loose tooth [None]
  - Tooth resorption [None]
  - Periodontal disease [None]
  - Bone disorder [None]
